FAERS Safety Report 12857972 (Version 1)
Quarter: 2016Q4

REPORT INFORMATION
  Report Type: Spontaneous
  Country: US (occurrence: US)
  Receive Date: 20161018
  Receipt Date: 20161018
  Transmission Date: 20170207
  Serious: No
  Sender: FDA-Public Use
  Company Number: US-SA-2016SA156136

PATIENT
  Age: 39 Year
  Sex: Male

DRUGS (3)
  1. LEMTRADA [Suspect]
     Active Substance: ALEMTUZUMAB
     Route: 042
  2. AMPYRA [Suspect]
     Active Substance: DALFAMPRIDINE
     Route: 065
     Dates: start: 20151119
  3. LEMTRADA [Suspect]
     Active Substance: ALEMTUZUMAB
     Route: 042

REACTIONS (1)
  - Malaise [Unknown]
